FAERS Safety Report 6811170-X (Version None)
Quarter: 2010Q2

REPORT INFORMATION
  Report Type: 
  Country: None (occurrence: None)
  Receive Date: 20100630
  Receipt Date: 20090709
  Transmission Date: 20101027
  Serious: No
  Sender: FDA-Public Use
  Company Number: US-AMGEN-KDL355203

PATIENT
  Age: 84 Year
  Sex: Female

DRUGS (2)
  1. PROCRIT [Suspect]
     Indication: RENAL FAILURE CHRONIC
     Dates: start: 20070101
  2. UNSPECIFIED MEDICATION [Concomitant]

REACTIONS (1)
  - INJURY ASSOCIATED WITH DEVICE [None]
